FAERS Safety Report 12106333 (Version 2)
Quarter: 2016Q3

REPORT INFORMATION
  Report Type: Spontaneous
  Country: DK (occurrence: DK)
  Receive Date: 20160223
  Receipt Date: 20160722
  Transmission Date: 20161109
  Serious: Yes (Congenital Anomaly)
  Sender: FDA-Public Use
  Company Number: DK-ABBVIE-16P-044-1566246-00

PATIENT
  Sex: Male

DRUGS (1)
  1. DEPAKINE RETARD [Suspect]
     Active Substance: VALPROIC ACID
     Indication: MATERNAL EXPOSURE TIMING UNSPECIFIED
     Route: 064

REACTIONS (9)
  - Intentional self-injury [Unknown]
  - Autism [Unknown]
  - Social problem [Unknown]
  - Insomnia [Unknown]
  - Ill-defined disorder [Unknown]
  - Attention deficit/hyperactivity disorder [Unknown]
  - Screaming [Unknown]
  - Nightmare [Unknown]
  - Foetal exposure during pregnancy [Unknown]
